FAERS Safety Report 17292980 (Version 3)
Quarter: 2020Q1

REPORT INFORMATION
  Report Type: Spontaneous
  Country: US (occurrence: US)
  Receive Date: 20200121
  Receipt Date: 20200121
  Transmission Date: 20200409
  Serious: No
  Sender: FDA-Public Use
  Company Number: US-GLENMARK PHARMACEUTICALS-2019GMK043821

PATIENT

DRUGS (2)
  1. TACROZ OINTMENT 0.1% [Suspect]
     Active Substance: TACROLIMUS
     Indication: RASH
     Dosage: UNK, BID (STARTED AGAIN ONCE FOR THE LAST TIME ON 15-OCT-2019)
     Route: 061
     Dates: start: 20191012, end: 20191014
  2. TACROZ OINTMENT 0.1% [Suspect]
     Active Substance: TACROLIMUS
     Indication: RASH
     Dosage: UNK, BID (STARTED AGAIN ONCE FOR THE LAST TIME ON 15-OCT-2019)
     Route: 061
     Dates: start: 20191015, end: 20191015

REACTIONS (3)
  - Product packaging quantity issue [Unknown]
  - Pruritus [Not Recovered/Not Resolved]
  - Drug ineffective [Unknown]

NARRATIVE: CASE EVENT DATE: 201910
